FAERS Safety Report 4831566-5 (Version None)
Quarter: 2005Q4

REPORT INFORMATION
  Report Type: 
  Country: None (occurrence: None)
  Receive Date: 20051118
  Receipt Date: 20050930
  Transmission Date: 20060501
  Serious: Yes (Hospitalization)
  Sender: FDA-Public Use
  Company Number: US-MERCK-0510USA00736

PATIENT
  Age: 67 Year
  Sex: Female
  Weight: 100 kg

DRUGS (40)
  1. VIOXX [Suspect]
     Indication: ARTHRITIS
     Route: 048
     Dates: start: 20000619, end: 20040930
  2. VIOXX [Suspect]
     Indication: OSTEOARTHRITIS
     Route: 048
     Dates: start: 20000619, end: 20040930
  3. ALPRAZOLAM [Concomitant]
     Route: 065
  4. AMARYL [Concomitant]
     Route: 065
  5. ACETAMINOPHEN AND HYDROCODONE BITARTRATE [Concomitant]
     Route: 065
  6. BAYCOL [Concomitant]
     Route: 065
  7. CATAPRES-TTS-1 [Concomitant]
     Route: 065
  8. CEPHALEXIN [Concomitant]
     Route: 065
  9. CLONIDINE [Concomitant]
     Route: 065
  10. CORZIDE TABLETS [Concomitant]
     Route: 065
  11. DICYCLOMINE HYDROCHLORIDE [Concomitant]
     Route: 065
  12. DIFLUCAN [Concomitant]
     Route: 065
  13. DOXYCYCLINE [Concomitant]
     Route: 065
  14. FUROSEMIDE [Concomitant]
     Route: 065
  15. KLOR-CON [Concomitant]
     Route: 065
  16. LEVAQUIN [Concomitant]
     Route: 065
  17. LIPITOR [Concomitant]
     Route: 065
  18. LOTREL [Concomitant]
     Route: 065
  19. METOPROLOL [Concomitant]
     Route: 065
  20. NEXIUM [Concomitant]
     Route: 065
  21. NITROSTAT [Concomitant]
     Route: 065
  22. NITROGLYCERIN [Concomitant]
     Route: 065
  23. PATANOL [Concomitant]
     Route: 065
  24. PAXIL [Concomitant]
     Route: 065
  25. PREMPRO [Concomitant]
     Route: 065
  26. PREVACID [Concomitant]
     Route: 065
  27. PRILOSEC [Concomitant]
     Route: 065
  28. PROTONIX [Concomitant]
     Route: 065
  29. RANITIDINE [Concomitant]
     Route: 065
  30. ROBINUL [Concomitant]
     Route: 065
  31. SUCRALFATE [Concomitant]
     Route: 065
  32. SYNTHROID [Concomitant]
     Route: 065
  33. HYDROCHLOROTHIAZIDE AND TRIAMTERENE [Concomitant]
     Route: 065
  34. TRIMOX [Concomitant]
     Route: 065
  35. ZANAFLEX [Concomitant]
     Route: 065
  36. ZYRTEC [Concomitant]
     Route: 065
  37. METROGEL [Concomitant]
     Route: 065
  38. BETAMETHASONE DIPROPIONATE AND CLOTRIMAZOLE [Concomitant]
     Route: 065
  39. ACETAMINOPHEN AND PROPOXYPHENE NAPSYLATE [Concomitant]
     Route: 065
  40. [THERAPY UNSPECIFIED] [Concomitant]
     Route: 065

REACTIONS (3)
  - DEPRESSION [None]
  - MYOCARDIAL INFARCTION [None]
  - WOUND INFECTION STAPHYLOCOCCAL [None]
